FAERS Safety Report 26121393 (Version 1)
Quarter: 2025Q4

REPORT INFORMATION
  Report Type: Spontaneous
  Country: US (occurrence: None)
  Receive Date: 20251203
  Receipt Date: 20251203
  Transmission Date: 20260117
  Serious: Yes (Death)
  Sender: FDA-CTU
  Company Number: None

PATIENT
  Age: 82 Year
  Sex: Male

DRUGS (10)
  1. QUTENZA [Suspect]
     Active Substance: CAPSAICIN
     Dosage: OTHER FREQUENCY : EVERY 3 MONTHS;?
     Route: 062
     Dates: start: 20250310, end: 20250914
  2. CARVEDILOL [Concomitant]
     Active Substance: CARVEDILOL
  3. FINASTERIDE [Concomitant]
     Active Substance: FINASTERIDE
  4. LOSARTAN [Concomitant]
     Active Substance: LOSARTAN
  5. METHIMAZOLE [Concomitant]
     Active Substance: METHIMAZOLE
  6. MONTELUKAST [Concomitant]
     Active Substance: MONTELUKAST
  7. ATORVASTATIN [Concomitant]
     Active Substance: ATORVASTATIN
  8. ACETAMINOPHEN [Concomitant]
     Active Substance: ACETAMINOPHEN
  9. TOUJEO [Concomitant]
     Active Substance: INSULIN GLARGINE
  10. OZEMPIC [Concomitant]
     Active Substance: SEMAGLUTIDE

REACTIONS (1)
  - Death [None]

NARRATIVE: CASE EVENT DATE: 20250914
